FAERS Safety Report 8714424 (Version 8)
Quarter: 2016Q3

REPORT INFORMATION
  Report Type: Report from Study
  Country: US (occurrence: US)
  Receive Date: 20120809
  Receipt Date: 20160928
  Transmission Date: 20161109
  Serious: Yes (Other)
  Sender: FDA-Public Use
  Company Number: US-AMGEN-USASP2012049204

PATIENT
  Age: 63 Year
  Sex: Female

DRUGS (6)
  1. ENBREL [Suspect]
     Active Substance: ETANERCEPT
     Dosage: 50 MG, QWK
     Route: 065
     Dates: start: 20090330
  2. JANUVIA [Concomitant]
     Active Substance: SITAGLIPTIN PHOSPHATE
     Indication: DIABETES MELLITUS
     Dosage: UNK
  3. ENBREL [Suspect]
     Active Substance: ETANERCEPT
     Indication: ANKYLOSING SPONDYLITIS
     Dosage: UNK UNK, QWK
     Route: 065
     Dates: start: 2007
  4. PLAVIX [Concomitant]
     Active Substance: CLOPIDOGREL BISULFATE
     Dosage: UNK
  5. METFORMIN [Concomitant]
     Active Substance: METFORMIN HYDROCHLORIDE
     Indication: DIABETES MELLITUS
     Dosage: UNK
  6. LASIX [Concomitant]
     Active Substance: FUROSEMIDE
     Dosage: UNK

REACTIONS (29)
  - Emphysema [Unknown]
  - Lipoma [Unknown]
  - Blood cholesterol abnormal [Not Recovered/Not Resolved]
  - Intervertebral disc disorder [Unknown]
  - Spinal deformity [Not Recovered/Not Resolved]
  - Spinal pain [Unknown]
  - Torticollis [Unknown]
  - Dysphagia [Unknown]
  - Local swelling [Unknown]
  - Gait disturbance [Not Recovered/Not Resolved]
  - Diabetes mellitus [Not Recovered/Not Resolved]
  - Blood pressure abnormal [Not Recovered/Not Resolved]
  - Breast cancer female [Recovered/Resolved]
  - Pulmonary hypertension [Unknown]
  - Mobility decreased [Unknown]
  - Inflammation [Unknown]
  - Back pain [Unknown]
  - Uveitis [Unknown]
  - Cataract [Not Recovered/Not Resolved]
  - Neuralgia [Not Recovered/Not Resolved]
  - Chronic obstructive pulmonary disease [Not Recovered/Not Resolved]
  - Gastrooesophageal reflux disease [Unknown]
  - Renal disorder [Unknown]
  - Nodule [Not Recovered/Not Resolved]
  - Intraocular pressure increased [Not Recovered/Not Resolved]
  - Condition aggravated [Unknown]
  - Cardiac failure congestive [Unknown]
  - Swelling [Unknown]
  - Pain [Unknown]

NARRATIVE: CASE EVENT DATE: 2010
